FAERS Safety Report 7935353-0 (Version None)
Quarter: 2011Q4

REPORT INFORMATION
  Report Type: 
  Country: None (occurrence: None)
  Receive Date: 20111122
  Receipt Date: 20111118
  Transmission Date: 20120403
  Serious: Yes (Other)
  Sender: FDA-Public Use
  Company Number: US-B.I. PHARMACEUTICALS,INC./RIDGEFIELD-2011-BP-26559BP

PATIENT
  Age: 87 Year
  Sex: Female

DRUGS (1)
  1. PRADAXA [Suspect]
     Dates: start: 20111027

REACTIONS (3)
  - ISCHAEMIC STROKE [None]
  - VOMITING [None]
  - NAUSEA [None]
